FAERS Safety Report 25979383 (Version 1)
Quarter: 2025Q4

REPORT INFORMATION
  Report Type: Spontaneous
  Country: EU (occurrence: EU)
  Receive Date: 20251030
  Receipt Date: 20251030
  Transmission Date: 20260117
  Serious: Yes (Life-Threatening)
  Sender: RANBAXY
  Company Number: EU-SUN PHARMACEUTICAL INDUSTRIES INC-2025RR-533889

PATIENT
  Age: 68 Year
  Sex: Female
  Weight: 52 kg

DRUGS (11)
  1. RIVAROXABAN [Suspect]
     Active Substance: RIVAROXABAN
     Indication: Atrial fibrillation
     Dosage: 15 MILLIGRAM, DAILY
     Route: 048
     Dates: start: 20231222, end: 20250617
  2. BISOPROLOL [Suspect]
     Active Substance: BISOPROLOL
     Indication: Atrial fibrillation
     Dosage: 2.5MG 1-0-1
     Route: 048
     Dates: start: 20231222, end: 20250617
  3. PACLITAXEL [Suspect]
     Active Substance: PACLITAXEL
     Indication: Breast cancer
     Dosage: 80 MILLIGRAM/SQ. METER, IN TOTAL
     Route: 040
     Dates: start: 20250604, end: 20250604
  4. PACLITAXEL [Suspect]
     Active Substance: PACLITAXEL
     Indication: Neoplasm progression
     Dosage: 80 MILLIGRAM/SQ. METER, IN TOTAL
     Route: 065
     Dates: start: 20250610, end: 20250610
  5. LERCANIDIPINE [Concomitant]
     Active Substance: LERCANIDIPINE
     Indication: Hypertension
     Dosage: 10 MILLIGRAM, DAILY
     Route: 048
  6. RALOXIFENE [Concomitant]
     Active Substance: RALOXIFENE
     Indication: Osteoporosis prophylaxis
     Dosage: 60 MILLIGRAM, DAILY
     Route: 048
  7. Calcidose [Concomitant]
     Indication: Osteoporosis prophylaxis
     Dosage: 1 DOSAGE FORM, DAILY
     Route: 048
  8. ACETAMINOPHEN [Concomitant]
     Active Substance: ACETAMINOPHEN
     Indication: Pain
     Route: 048
  9. PHLOROGLUCINOL [Concomitant]
     Active Substance: PHLOROGLUCINOL
     Indication: Abdominal pain
     Dosage: 160 MILLIGRAM, 1DOSE/ASNECESSA
     Route: 048
  10. CALCIUM PHOSPHATE, DIBASIC, ANHYDROUS\MAGNESIUM GLYCEROPHOSPHATE\PHOSP [Concomitant]
     Active Substance: CALCIUM PHOSPHATE, DIBASIC, ANHYDROUS\MAGNESIUM GLYCEROPHOSPHATE\PHOSPHORIC ACID\SODIUM PHOSPHATE, D
     Indication: Hypophosphataemia
     Dosage: 20 GTT DROPS, DAILY
     Route: 048
  11. ALPRAZOLAM [Concomitant]
     Active Substance: ALPRAZOLAM
     Indication: Product used for unknown indication
     Dosage: 0.25MG 1-1-1
     Route: 048
     Dates: start: 20250617

REACTIONS (4)
  - Intestinal obstruction [Recovered/Resolved]
  - Congenital aplasia [Recovered/Resolved]
  - Atrial fibrillation [Recovered/Resolved]
  - Cardiac failure [Recovered/Resolved]

NARRATIVE: CASE EVENT DATE: 20250617
